FAERS Safety Report 14415347 (Version 6)
Quarter: 2022Q1

REPORT INFORMATION
  Report Type: Spontaneous
  Country: DE (occurrence: DE)
  Receive Date: 20180121
  Receipt Date: 20220322
  Transmission Date: 20220424
  Serious: Yes (Death, Life-Threatening, Hospitalization, Other)
  Sender: FDA-Public Use
  Company Number: PHHY2016DE185996

PATIENT
  Age: 65 Year
  Sex: Male
  Weight: 58 kg

DRUGS (19)
  1. PANTOPRAZOLE [Interacting]
     Active Substance: PANTOPRAZOLE
     Indication: Gastrooesophageal reflux disease
     Dosage: 40 MG, UNK (1X 20-40MG OVER YEARS)
     Route: 048
     Dates: start: 20150327, end: 20150416
  2. SIMVASTATIN [Interacting]
     Active Substance: SIMVASTATIN
     Indication: Atrial fibrillation
     Dosage: 40 MG, QD
     Route: 048
     Dates: end: 20150416
  3. METOPROLOL [Interacting]
     Active Substance: METOPROLOL
     Indication: Hypertension
     Dosage: 95 MG, QD
     Route: 065
     Dates: start: 20140901, end: 20150601
  4. EMTRICITABINE [Interacting]
     Active Substance: EMTRICITABINE
     Indication: HIV infection
     Dosage: UNK
     Route: 065
  5. TENOFOVIR DISOPROXIL FUMARATE [Interacting]
     Active Substance: TENOFOVIR DISOPROXIL FUMARATE
     Indication: HIV infection
     Dosage: UNK
     Route: 065
  6. DOLUTEGRAVIR [Interacting]
     Active Substance: DOLUTEGRAVIR
     Indication: HIV infection
     Dosage: UNK
     Route: 065
  7. ASPIRIN [Interacting]
     Active Substance: ASPIRIN
     Indication: Atrial fibrillation
     Dosage: 100 MG, QD
     Route: 065
  8. TRUVADA [Interacting]
     Active Substance: EMTRICITABINE\TENOFOVIR DISOPROXIL FUMARATE
     Indication: HIV infection
     Dosage: 1 DF, QD
     Route: 048
     Dates: start: 20140919, end: 20150414
  9. TIVICAY [Interacting]
     Active Substance: DOLUTEGRAVIR SODIUM
     Indication: HIV infection
     Dosage: 50 MG, QD
     Route: 048
     Dates: start: 20140919, end: 20150414
  10. KALETRA [Concomitant]
     Active Substance: LOPINAVIR\RITONAVIR
     Indication: HIV infection
     Dosage: UNK
     Route: 065
     Dates: start: 20150508
  11. OMEPRAZOLE [Concomitant]
     Active Substance: OMEPRAZOLE
     Indication: Gastritis
     Dosage: UNK
     Route: 065
     Dates: start: 201409
  12. OMEPRAZOLE [Concomitant]
     Active Substance: OMEPRAZOLE
     Indication: Prophylaxis
  13. PIPERACILLIN SODIUM\TAZOBACTAM SODIUM [Concomitant]
     Active Substance: PIPERACILLIN SODIUM\TAZOBACTAM SODIUM
     Indication: Product used for unknown indication
     Route: 065
  14. MEROPENEM [Concomitant]
     Active Substance: MEROPENEM
     Indication: Product used for unknown indication
     Dosage: UNK
     Route: 065
     Dates: start: 20150525
  15. SULFAMETHOXAZOLE\TRIMETHOPRIM [Concomitant]
     Active Substance: SULFAMETHOXAZOLE\TRIMETHOPRIM
     Indication: Prophylaxis
     Dosage: UNK
     Route: 065
     Dates: start: 201409, end: 201504
  16. CANDIO HERMAL [Concomitant]
     Indication: Oesophageal candidiasis
     Dosage: UNK
     Route: 065
     Dates: start: 201409, end: 201411
  17. CANDIO HERMAL [Concomitant]
     Dosage: UNK
     Route: 065
     Dates: start: 201505, end: 201506
  18. CEFTRIAXONE [Concomitant]
     Active Substance: CEFTRIAXONE
     Indication: Product used for unknown indication
     Dosage: UNK
     Route: 065
     Dates: start: 20150405
  19. FLUCONAZOLE [Concomitant]
     Active Substance: FLUCONAZOLE
     Indication: Product used for unknown indication
     Dosage: UNK
     Route: 065

REACTIONS (54)
  - Multiple organ dysfunction syndrome [Fatal]
  - Candida infection [Fatal]
  - Hepatic function abnormal [Fatal]
  - Metabolic acidosis [Fatal]
  - Chromaturia [Fatal]
  - Pneumonia [Fatal]
  - General physical health deterioration [Fatal]
  - Sepsis [Fatal]
  - Weight decreased [Fatal]
  - Cholangitis [Fatal]
  - Decreased appetite [Fatal]
  - Ocular icterus [Fatal]
  - Hepatic enzyme increased [Fatal]
  - Coagulopathy [Fatal]
  - Faeces pale [Fatal]
  - Acute hepatic failure [Fatal]
  - Upper gastrointestinal haemorrhage [Fatal]
  - Hepatitis [Fatal]
  - Bone marrow failure [Fatal]
  - Drug interaction [Fatal]
  - Cholestasis [Fatal]
  - Circulatory collapse [Fatal]
  - Hepatic necrosis [Fatal]
  - Abdominal pain upper [Fatal]
  - Hepatotoxicity [Fatal]
  - Duodenal ulcer [Fatal]
  - Hepatic failure [Fatal]
  - Acidosis [Fatal]
  - Pancytopenia [Fatal]
  - Shock haemorrhagic [Fatal]
  - Hyperferritinaemia [Fatal]
  - Portal fibrosis [Fatal]
  - Hepatitis fulminant [Fatal]
  - Renal failure [Fatal]
  - Splenomegaly [Fatal]
  - Hypovolaemic shock [Fatal]
  - Hepatomegaly [Fatal]
  - Disseminated intravascular coagulation [Fatal]
  - Hypoxia [Fatal]
  - Lymphadenopathy [Fatal]
  - Confusional state [Fatal]
  - Hepatitis cholestatic [Fatal]
  - Neutropenia [Fatal]
  - Agranulocytosis [Fatal]
  - Neutropenic sepsis [Fatal]
  - Thrombocytopenia [Fatal]
  - Abdominal pain [Fatal]
  - Leukopenia [Fatal]
  - Pyrexia [Fatal]
  - Jaundice [Fatal]
  - Nausea [Fatal]
  - Fatigue [Fatal]
  - Asthenia [Fatal]
  - Drug-induced liver injury [Fatal]

NARRATIVE: CASE EVENT DATE: 20150324
